FAERS Safety Report 7521917-5 (Version None)
Quarter: 2011Q2

REPORT INFORMATION
  Report Type: 
  Country: None (occurrence: None)
  Receive Date: 20110603
  Receipt Date: 20110520
  Transmission Date: 20111010
  Serious: Yes (Hospitalization)
  Sender: FDA-Public Use
  Company Number: US-ELI_LILLY_AND_COMPANY-US201011000077

PATIENT
  Sex: Female

DRUGS (1)
  1. FORTEO [Suspect]
     Dosage: 20 UG, QD
     Route: 058

REACTIONS (8)
  - DRUG DOSE OMISSION [None]
  - SOMNOLENCE [None]
  - NEUROPATHY PERIPHERAL [None]
  - FIBROMYALGIA [None]
  - PAIN [None]
  - FATIGUE [None]
  - SPEECH DISORDER [None]
  - INJECTION SITE PAIN [None]
